FAERS Safety Report 9162202 (Version 1)
Quarter: 2013Q1

REPORT INFORMATION
  Report Type: Spontaneous
  Country: US (occurrence: None)
  Receive Date: 20130222
  Receipt Date: 20130222
  Transmission Date: 20140127
  Serious: Yes (Other)
  Sender: FDA-Public Use
  Company Number: ADR-2012-01523

PATIENT
  Sex: Female

DRUGS (2)
  1. BACLOFEN INTRATHECAL (BACLOFEN INJECTION) [Suspect]
     Indication: MUSCLE SPASTICITY
  2. SALINE (PFNS, PBS) [Concomitant]

REACTIONS (7)
  - Abasia [None]
  - Wheelchair user [None]
  - Faecal incontinence [None]
  - Muscular weakness [None]
  - Dysstasia [None]
  - Fall [None]
  - Back pain [None]
